FAERS Safety Report 8450366-0 (Version None)
Quarter: 2012Q2

REPORT INFORMATION
  Report Type: 
  Country: None (occurrence: None)
  Receive Date: 20120620
  Receipt Date: 20120615
  Transmission Date: 20120825
  Serious: Yes (Hospitalization)
  Sender: FDA-Public Use
  Company Number: IT-PFIZER INC-2012145765

PATIENT
  Age: 71 Year
  Sex: Male

DRUGS (5)
  1. LIDOCAINE [Suspect]
     Dosage: UNK
  2. DEPO-MEDROL [Suspect]
     Dosage: 100 MG, 1X/DAY
     Route: 014
     Dates: start: 20110824, end: 20110824
  3. BISOPROLOL FUMARATE [Concomitant]
  4. METFORMIN HCL [Concomitant]
  5. TICLID [Concomitant]

REACTIONS (2)
  - PYREXIA [None]
  - URTICARIA [None]
